FAERS Safety Report 4720925-7 (Version None)
Quarter: 2005Q3

REPORT INFORMATION
  Report Type: 
  Country: None (occurrence: None)
  Receive Date: 20050720
  Receipt Date: 20050718
  Transmission Date: 20060218
  Serious: Yes (Hospitalization)
  Sender: FDA-Public Use
  Company Number: 200512122GDS

PATIENT
  Age: 78 Year
  Sex: Female

DRUGS (3)
  1. ASPIRIN [Suspect]
     Dosage: 100 MG, TOTAL DAILY
     Dates: start: 19960101
  2. WARFARIN SODIUM [Suspect]
     Dosage: 1.5 MG, TOTAL DAILY
     Dates: start: 19960101
  3. PARAMIDIN                            (BUCOLOME) [Suspect]
     Dosage: 300 MG, TOTAL DAILY
     Dates: start: 19960101

REACTIONS (7)
  - ABDOMINAL PAIN [None]
  - ANAEMIA [None]
  - DRUG INTERACTION [None]
  - LARGE INTESTINAL HAEMORRHAGE [None]
  - MELAENA [None]
  - RECTAL HAEMORRHAGE [None]
  - VASCULAR RUPTURE [None]
